FAERS Safety Report 6509126-X (Version None)
Quarter: 2009Q4

REPORT INFORMATION
  Report Type: 
  Country: None (occurrence: None)
  Receive Date: 20091221
  Receipt Date: 20091209
  Transmission Date: 20100525
  Serious: Yes (Other)
  Sender: FDA-Public Use
  Company Number: US-PFIZER INC-2009308562

PATIENT
  Sex: Female
  Weight: 70.306 kg

DRUGS (4)
  1. CHANTIX [Suspect]
     Indication: SMOKING CESSATION THERAPY
     Route: 048
     Dates: start: 20090101, end: 20091202
  2. PLAVIX [Concomitant]
     Route: 048
  3. HYDROCODONE [Concomitant]
     Indication: PAIN
     Route: 048
  4. SOMA [Concomitant]
     Indication: PAIN
     Route: 048

REACTIONS (9)
  - ABNORMAL DREAMS [None]
  - AGITATION [None]
  - ANGER [None]
  - HOMICIDAL IDEATION [None]
  - INSOMNIA [None]
  - INTESTINAL OBSTRUCTION [None]
  - MALAISE [None]
  - NAUSEA [None]
  - PSYCHOMOTOR HYPERACTIVITY [None]
